APPROVED DRUG PRODUCT: QUETIAPINE FUMARATE
Active Ingredient: QUETIAPINE FUMARATE
Strength: EQ 300MG BASE
Dosage Form/Route: TABLET, EXTENDED RELEASE;ORAL
Application: A090757 | Product #003
Applicant: PH HEALTH LTD
Approved: Dec 1, 2017 | RLD: No | RS: No | Type: DISCN